FAERS Safety Report 7125237 (Version 3)
Quarter: 2014Q3

REPORT INFORMATION
  Report Type: Spontaneous
  Country: US (occurrence: None)
  Receive Date: 20090910
  Receipt Date: 20140827
  Transmission Date: 20150326
  Serious: Yes (Other)
  Sender: FDA-Public Use
  Company Number: 2009S1006942

PATIENT
  Age: 70 Year
  Sex: Male

DRUGS (6)
  1. COZAAR [Concomitant]
     Active Substance: LOSARTAN POTASSIUM
  2. PROTONIX [Concomitant]
     Active Substance: PANTOPRAZOLE SODIUM
  3. PHOSPHO-SODA [Suspect]
     Active Substance: SODIUM PHOSPHATE, DIBASIC\SODIUM PHOSPHATE, MONOBASIC
     Indication: COLONOSCOPY
     Dosage: PO
     Route: 048
     Dates: start: 20030513, end: 20030513
  4. SYNTHROID [Concomitant]
     Active Substance: LEVOTHYROXINE SODIUM
  5. LOTREL (BENAZEPRIL HYDROCHLORIDE, AMLODIPINE BESILATE) [Concomitant]
  6. HYDROCHLOROTHIAZIDE. [Concomitant]
     Active Substance: HYDROCHLOROTHIAZIDE

REACTIONS (27)
  - Renal failure acute [None]
  - Benign prostatic hyperplasia [None]
  - Colon adenoma [None]
  - Renal failure chronic [None]
  - Hypotension [None]
  - Memory impairment [None]
  - Orchitis [None]
  - Urinary tract obstruction [None]
  - Dehydration [None]
  - Anaemia [None]
  - Acquired oesophageal web [None]
  - Throat tightness [None]
  - Haemorrhoids [None]
  - Hypokalaemia [None]
  - Epididymitis [None]
  - Hyperthyroidism [None]
  - Influenza like illness [None]
  - Arteriosclerosis [None]
  - Dizziness [None]
  - Nocturia [None]
  - Nephrosclerosis [None]
  - Confusional state [None]
  - Hiatus hernia [None]
  - Diverticulum intestinal [None]
  - Dysphagia [None]
  - Dyspepsia [None]
  - Prostate cancer [None]

NARRATIVE: CASE EVENT DATE: 20030521
